FAERS Safety Report 8612112-7 (Version None)
Quarter: 2012Q3

REPORT INFORMATION
  Report Type: 
  Country: None (occurrence: None)
  Receive Date: 20120822
  Receipt Date: 20120810
  Transmission Date: 20120928
  Serious: Yes (Hospitalization)
  Sender: FDA-Public Use
  Company Number: NO-BRISTOL-MYERS SQUIBB COMPANY-16859423

PATIENT
  Age: 80 Year
  Sex: Female

DRUGS (9)
  1. METFORMIN HCL [Suspect]
     Route: 048
  2. DIGITOXIN TAB [Concomitant]
     Dosage: 0.05MG:EVERY MONDAY,TUE,THUR,FRI
     Route: 048
  3. SIMVASTATIN [Concomitant]
     Dosage: ONCE
     Route: 048
  4. WARFARIN SODIUM [Concomitant]
     Route: 048
     Dates: end: 20120718
  5. BUMETANIDE [Suspect]
     Route: 048
  6. VENTOLIN [Concomitant]
     Route: 055
  7. ESIDRIX [Suspect]
     Route: 048
     Dates: end: 20120723
  8. SPIRIVA [Concomitant]
  9. FLUTICASONE PROPIONATE/SALMETEROL [Concomitant]
     Indication: CHRONIC OBSTRUCTIVE PULMONARY DISEASE
     Route: 055

REACTIONS (2)
  - HYPOKALAEMIA [None]
  - DEHYDRATION [None]
